FAERS Safety Report 8150604-8 (Version None)
Quarter: 2012Q1

REPORT INFORMATION
  Report Type: 
  Country: None (occurrence: None)
  Receive Date: 20120220
  Receipt Date: 20120210
  Transmission Date: 20120608
  Serious: Yes (Hospitalization)
  Sender: FDA-Public Use
  Company Number: PHHY2011NL82093

PATIENT
  Sex: Male

DRUGS (13)
  1. IMMUNOSUPPRESSANTS [Concomitant]
  2. AMLODIPINE [Concomitant]
  3. ZOMETA [Suspect]
     Dosage: 4 MG/5 ML 1X PER 28 DAYS
     Route: 042
     Dates: start: 20110818
  4. ZOMETA [Suspect]
     Dosage: 4 MG/5 ML 1X PER 28 DAYS
     Route: 042
     Dates: start: 20110914
  5. PREDNISOLONE [Concomitant]
     Route: 048
  6. TAMSULOSIN HCL [Concomitant]
  7. ZOMETA [Suspect]
     Dosage: 4 MG/5 ML 1X PER 28 DAYS
     Route: 042
     Dates: start: 20111206
  8. TAXOTERE [Concomitant]
     Route: 042
  9. CALCIUM CARBONATE [Concomitant]
  10. SELOKEEN [Concomitant]
  11. ZOMETA [Suspect]
     Dosage: 4 MG/5 ML 1X PER 28 DAYS
     Route: 042
     Dates: start: 20111011
  12. CRESTOR [Concomitant]
  13. ZOMETA [Suspect]
     Indication: PROSTATE CANCER METASTATIC
     Dosage: 4 MG/5 ML 1X PER 28 DAYS
     Dates: start: 20110721

REACTIONS (6)
  - INFLAMMATION [None]
  - RENAL IMPAIRMENT [None]
  - MALAISE [None]
  - URINARY TRACT INFECTION [None]
  - CYSTITIS NONINFECTIVE [None]
  - PYREXIA [None]
